FAERS Safety Report 14603207 (Version 2)
Quarter: 2020Q3

REPORT INFORMATION
  Report Type: Spontaneous
  Country: BR (occurrence: BR)
  Receive Date: 20180306
  Receipt Date: 20200902
  Transmission Date: 20201102
  Serious: Yes (Hospitalization, Other)
  Sender: FDA-Public Use
  Company Number: BR-AMGEN-BRASP2018028117

PATIENT
  Age: 67 Year
  Sex: Female
  Weight: 52 kg

DRUGS (11)
  1. INSULIN [Concomitant]
     Active Substance: INSULIN NOS
     Dosage: UNK, QD
  2. ELCAL?D [Concomitant]
     Active Substance: CALCIUM CARBONATE\CHOLECALCIFEROL
     Dosage: UNK UNK, QD
  3. HUMALOG [Concomitant]
     Active Substance: INSULIN LISPRO
     Dosage: 4 APPLICATIONS IN THE DAY: IN THE MORNING, AT LUNCH, BEFORE DINNER AND BEFORE BEDTIME
  4. PROLIA [Suspect]
     Active Substance: DENOSUMAB
     Indication: OSTEOPOROSIS
     Dosage: 60 MILLIGRAM PER MILLILITRE, Q6MO
     Route: 058
     Dates: start: 201708
  5. TRESIBA [Concomitant]
     Active Substance: INSULIN DEGLUDEC
     Dosage: 4 APPLICATIONS IN THE DAY: IN THE MORNING, AT LUNCH, BEFORE DINNER AND BEFORE BEDTIME
  6. INSULIN [Concomitant]
     Active Substance: INSULIN NOS
     Indication: TYPE 1 DIABETES MELLITUS
     Dosage: UNK UNK, TID
  7. PURAN [Concomitant]
     Active Substance: LEVOTHYROXINE SODIUM
     Dosage: 57 MICROGRAM, 2 TIMES A WEEK
  8. ECASIL [ACETYLSALICYLIC ACID] [Concomitant]
     Indication: PROPHYLAXIS
     Dosage: 81 MILLIGRAM, QD
  9. EUTIROX [Concomitant]
     Active Substance: LEVOTHYROXINE SODIUM
     Indication: THYROID DISORDER
     Dosage: UNK (1 PILL ), QD
  10. VITAMIN D [VITAMIN D NOS] [Concomitant]
     Active Substance: VITAMIN D NOS
     Dosage: UNK UNK, QWK
  11. PURAN [Concomitant]
     Active Substance: LEVOTHYROXINE SODIUM
     Indication: HYPOTHYROIDISM
     Dosage: 50 MICROGRAM,5 TIMES A WEEK

REACTIONS (10)
  - Salivary gland resection [Unknown]
  - Neck mass [Unknown]
  - Ophthalmoplegia [Not Recovered/Not Resolved]
  - Herpes zoster [Unknown]
  - Stress [Unknown]
  - Dental restoration failure [Unknown]
  - Post procedural haematoma [Recovered/Resolved]
  - Diplopia [Not Recovered/Not Resolved]
  - Tooth infection [Not Recovered/Not Resolved]
  - Gingivitis [Not Recovered/Not Resolved]

NARRATIVE: CASE EVENT DATE: 201711
